FAERS Safety Report 7327416-8 (Version None)
Quarter: 2011Q1

REPORT INFORMATION
  Report Type: 
  Country: None (occurrence: None)
  Receive Date: 20110303
  Receipt Date: 20110223
  Transmission Date: 20110831
  Serious: Yes (Other)
  Sender: FDA-Public Use
  Company Number: US-ASTRAZENECA-2007UW02065

PATIENT
  Age: 481 Month
  Sex: Male
  Weight: 79.4 kg

DRUGS (24)
  1. LOPID [Concomitant]
     Dates: end: 20011205
  2. LORAZEPAM [Concomitant]
     Route: 065
  3. EFFEXOR [Concomitant]
     Route: 065
  4. TRIMOX [Concomitant]
     Route: 065
  5. AMBIEN [Concomitant]
     Route: 065
  6. NEURONTIN [Concomitant]
     Route: 065
  7. ESKALITH [Concomitant]
     Route: 065
  8. GLUCOPHAGE [Concomitant]
     Route: 065
  9. DIOVAN [Concomitant]
     Route: 065
  10. SEROQUEL [Suspect]
     Indication: PAIN
     Dosage: 25-125MG
     Route: 048
     Dates: start: 19990329
  11. NAPROXEN [Concomitant]
     Route: 065
  12. WELLBUTRIN [Concomitant]
     Route: 065
  13. ALPRAZOLAM [Concomitant]
     Route: 065
  14. OXYCONTIN [Concomitant]
     Dosage: 20-40MG
     Route: 065
  15. ZOCOR [Concomitant]
     Route: 065
     Dates: start: 20011201
  16. LIPITOR [Concomitant]
     Route: 065
  17. PRAVACHOL [Concomitant]
     Route: 065
  18. VIAGRA [Concomitant]
     Route: 065
  19. NORVASC [Concomitant]
     Route: 065
  20. SEROQUEL [Suspect]
     Indication: MAJOR DEPRESSION
     Dosage: 25-125MG
     Route: 048
     Dates: start: 19990329
  21. LITHIUM [Concomitant]
     Route: 048
     Dates: start: 20040301, end: 20060601
  22. VICOPROFEN [Concomitant]
     Route: 065
  23. LOTREL [Concomitant]
     Indication: HYPERTENSION
     Dosage: 5 MG TO 20 MG
     Route: 065
     Dates: start: 20011201
  24. VYTORIN [Concomitant]
     Route: 065

REACTIONS (13)
  - CHEST PAIN [None]
  - BLOOD TRIGLYCERIDES INCREASED [None]
  - ABDOMINAL DISTENSION [None]
  - ERECTILE DYSFUNCTION [None]
  - EXOSTOSIS [None]
  - BLOOD CHOLESTEROL INCREASED [None]
  - ANAL FISTULA [None]
  - INTERVERTEBRAL DISC PROTRUSION [None]
  - RECTAL HAEMORRHAGE [None]
  - WEIGHT INCREASED [None]
  - NEPHROLITHIASIS [None]
  - TYPE 2 DIABETES MELLITUS [None]
  - CONSTIPATION [None]
